FAERS Safety Report 4833195-6 (Version None)
Quarter: 2005Q4

REPORT INFORMATION
  Report Type: 
  Country: None (occurrence: None)
  Receive Date: 20051117
  Receipt Date: 20051104
  Transmission Date: 20060501
  Serious: Yes (Hospitalization, Other)
  Sender: FDA-Public Use
  Company Number: KII-2005-0019529

PATIENT
  Age: 51 Year
  Sex: Female

DRUGS (2)
  1. OXYCONTIN [Suspect]
     Dosage: ORAL
     Route: 048
  2. ACETAMINIPHEN W/HYDROCODONE BITARTRATE(PARACETAMOL, HYDROCODONE BITART [Suspect]
     Dosage: ORAL
     Route: 048

REACTIONS (11)
  - AGITATION [None]
  - BLOOD POTASSIUM DECREASED [None]
  - BLOOD PRESSURE DECREASED [None]
  - BRADYCARDIA [None]
  - LETHARGY [None]
  - MIOSIS [None]
  - MULTIPLE DRUG OVERDOSE [None]
  - OXYGEN SATURATION DECREASED [None]
  - PNEUMONIA ASPIRATION [None]
  - RESPIRATORY RATE DECREASED [None]
  - SOMNOLENCE [None]
